FAERS Safety Report 8600574-0 (Version None)
Quarter: 2012Q3

REPORT INFORMATION
  Report Type: 
  Country: None (occurrence: None)
  Receive Date: 20120803
  Receipt Date: 20120430
  Transmission Date: 20120928
  Serious: Yes (Hospitalization, Other)
  Sender: FDA-Public Use
  Company Number: 2012P1019246

PATIENT
  Age: 66 Year
  Sex: Female

DRUGS (2)
  1. SULFAMETHOXAZOLE TRIMETHOPRIM [Concomitant]
  2. DICLOFENAC SODIUM [Suspect]
     Indication: BACK PAIN

REACTIONS (13)
  - VOMITING [None]
  - BLOOD BILIRUBIN INCREASED [None]
  - INTRAVASCULAR HAEMOLYSIS [None]
  - FATIGUE [None]
  - JAUNDICE [None]
  - LEUKOCYTOSIS [None]
  - ANAEMIA HAEMOLYTIC AUTOIMMUNE [None]
  - NAUSEA [None]
  - BLOOD LACTATE DEHYDROGENASE INCREASED [None]
  - RENAL FAILURE ACUTE [None]
  - CYSTITIS [None]
  - ANAEMIA [None]
  - HAEMATURIA [None]
